FAERS Safety Report 9119749 (Version 3)
Quarter: 2013Q3

REPORT INFORMATION
  Report Type: Spontaneous
  Country: GB (occurrence: None)
  Receive Date: 20130130
  Receipt Date: 20130715
  Transmission Date: 20140515
  Serious: Yes (Hospitalization)
  Sender: FDA-Public Use
  Company Number: 1575732

PATIENT
  Age: 5 Year
  Sex: Male

DRUGS (7)
  1. VINCRISTINE SULFATE [Suspect]
     Indication: NEOPLASM MALIGNANT
     Dosage: 1 MG MILLIGRAM(S) (1 WEEK)
     Route: 042
     Dates: start: 20120720
  2. IFOSFAMIDE [Suspect]
     Indication: NEOPLASM MALIGNANT
     Dosage: (CYCLICAL)
     Route: 042
     Dates: start: 20120720
  3. DACTINOMYCIN [Suspect]
     Indication: NEOPLASM MALIGNANT
     Route: 042
     Dates: start: 20120720
  4. ONDANSETRON [Concomitant]
  5. METOCLOPRAMIDE [Concomitant]
  6. SEPTRIN [Concomitant]
  7. PARACETAMOL [Concomitant]

REACTIONS (2)
  - Haematuria [None]
  - Vomiting [None]
